FAERS Safety Report 19781461 (Version 2)
Quarter: 2021Q3

REPORT INFORMATION
  Report Type: Report from Study
  Country: US (occurrence: US)
  Receive Date: 20210902
  Receipt Date: 20210903
  Transmission Date: 20211014
  Serious: Yes (Other)
  Sender: FDA-Public Use
  Company Number: US-UCBSA-2021016706

PATIENT
  Age: 57 Year
  Sex: Female

DRUGS (3)
  1. LACOSAMIDE. [Suspect]
     Active Substance: LACOSAMIDE
     Dosage: BREAKING EVENING DOSE IN HALF TO TAKE MORNING DOSE
     Dates: start: 20210822
  2. LACOSAMIDE. [Suspect]
     Active Substance: LACOSAMIDE
     Dosage: 150MG IN THE MORNING AND 100MG 2 TABLETS AT NIGHT
  3. LACOSAMIDE. [Suspect]
     Active Substance: LACOSAMIDE
     Indication: SEIZURE
     Dosage: 150MG IN THE MORNING AND 100 DAILY

REACTIONS (10)
  - Seizure [Not Recovered/Not Resolved]
  - Therapy interrupted [Unknown]
  - COVID-19 pneumonia [Not Recovered/Not Resolved]
  - Product dispensing error [Unknown]
  - Intentional product misuse [Unknown]
  - Wrong technique in product usage process [Unknown]
  - Product availability issue [Unknown]
  - Loss of consciousness [Not Recovered/Not Resolved]
  - Product use issue [Unknown]
  - Memory impairment [Not Recovered/Not Resolved]

NARRATIVE: CASE EVENT DATE: 20210402
